FAERS Safety Report 7033699-4 (Version None)
Quarter: 2010Q4

REPORT INFORMATION
  Report Type: 
  Country: None (occurrence: None)
  Receive Date: 20101007
  Receipt Date: 20100929
  Transmission Date: 20110411
  Serious: Yes (Other)
  Sender: FDA-Public Use
  Company Number: JP-ELI_LILLY_AND_COMPANY-JP201010000311

PATIENT
  Age: 51 Year
  Sex: Female

DRUGS (3)
  1. GEMZAR [Suspect]
     Indication: ADENOCARCINOMA PANCREAS
     Dosage: 1000 MG/M2, OTHER
     Route: 042
     Dates: start: 20030501
  2. GEMZAR [Suspect]
     Dosage: 1000 MG, OTHER
     Route: 042
     Dates: end: 20040401
  3. GEMZAR [Suspect]
     Dosage: UNK, UNK
     Route: 042
     Dates: start: 20040801

REACTIONS (4)
  - ILEUS [None]
  - METASTASES TO PERITONEUM [None]
  - PLATELET COUNT DECREASED [None]
  - WHITE BLOOD CELL COUNT DECREASED [None]
